FAERS Safety Report 22054987 (Version 2)
Quarter: 2023Q1

REPORT INFORMATION
  Report Type: Spontaneous
  Country: PL (occurrence: None)
  Receive Date: 20230302
  Receipt Date: 20230327
  Transmission Date: 20230417
  Serious: Yes (Other)
  Sender: FDA-Public Use
  Company Number: PL-ROCHE-3296976

PATIENT
  Age: 7 Year
  Sex: Male
  Weight: 23 kg

DRUGS (1)
  1. TAMIFLU [Suspect]
     Active Substance: OSELTAMIVIR PHOSPHATE
     Indication: Product used for unknown indication
     Dosage: FOR 5 DAYS
     Route: 065

REACTIONS (3)
  - Psychotic disorder [Unknown]
  - Somnambulism [Unknown]
  - Infection [Unknown]
